FAERS Safety Report 9385237 (Version 1)
Quarter: 2013Q3

REPORT INFORMATION
  Report Type: Report from Study
  Country: FR (occurrence: FR)
  Receive Date: 20130705
  Receipt Date: 20130705
  Transmission Date: 20140515
  Serious: Yes (Hospitalization)
  Sender: FDA-Public Use
  Company Number: FR-ASTELLAS-2013EU005718

PATIENT
  Age: 73 Year
  Sex: Male
  Weight: 63 kg

DRUGS (2)
  1. ENZALUTAMIDE [Suspect]
     Indication: PROSTATE CANCER
     Dosage: 160 MG, UNKNOWN/D
     Route: 048
     Dates: start: 20130329, end: 20130617
  2. MORPHINE [Concomitant]
     Indication: ANALGESIC THERAPY
     Dosage: 25 UG, UNKNOWN/D
     Route: 062
     Dates: start: 20130412

REACTIONS (3)
  - Cerebellar syndrome [Recovering/Resolving]
  - Cerebellar ataxia [Recovering/Resolving]
  - Tremor [Recovering/Resolving]
